FAERS Safety Report 12117578 (Version 1)
Quarter: 2016Q1

REPORT INFORMATION
  Report Type: Spontaneous
  Country: FR (occurrence: FR)
  Receive Date: 20160226
  Receipt Date: 20160226
  Transmission Date: 20160526
  Serious: Yes (Life-Threatening)
  Sender: FDA-Public Use
  Company Number: FR-ROCHE-1715701

PATIENT
  Age: 31 Year
  Sex: Female

DRUGS (3)
  1. EUPANTOL [Suspect]
     Active Substance: PANTOPRAZOLE SODIUM
     Indication: GENERAL ANAESTHESIA
     Route: 042
     Dates: start: 1982, end: 1982
  2. VALIUM [Suspect]
     Active Substance: DIAZEPAM
     Indication: GENERAL ANAESTHESIA
     Dosage: ONLY ONE INJECTION
     Route: 042
     Dates: start: 1982, end: 1982
  3. FENTANYL. [Suspect]
     Active Substance: FENTANYL
     Indication: GENERAL ANAESTHESIA
     Route: 042
     Dates: start: 1982, end: 1982

REACTIONS (1)
  - Anaphylactic shock [Recovered/Resolved]

NARRATIVE: CASE EVENT DATE: 1982
